FAERS Safety Report 5321312-3 (Version None)
Quarter: 2007Q2

REPORT INFORMATION
  Report Type: 
  Country: None (occurrence: None)
  Receive Date: 20070510
  Receipt Date: 20070502
  Transmission Date: 20071010
  Serious: Yes (Other)
  Sender: FDA-Public Use
  Company Number: US-GENENTECH-238170

PATIENT
  Sex: Male
  Weight: 18.548 kg

DRUGS (2)
  1. SOMATROPIN [Suspect]
     Indication: GROWTH HORMONE DEFICIENCY
     Dosage: 2.2 MG, 7/WEEK
     Dates: start: 20050922
  2. SOMATROPIN [Suspect]
     Dates: start: 20060412

REACTIONS (1)
  - HYPOTHYROIDISM [None]
